FAERS Safety Report 9386274 (Version 1)
Quarter: 2013Q3

REPORT INFORMATION
  Report Type: Spontaneous
  Country: US (occurrence: US)
  Receive Date: 20130708
  Receipt Date: 20130708
  Transmission Date: 20140515
  Serious: No
  Sender: FDA-Public Use
  Company Number: US-B.I. PHARMACEUTICALS,INC./RIDGEFIELD-2013-BI-19191BP

PATIENT
  Sex: 0

DRUGS (1)
  1. JENTADUETO [Suspect]
     Dosage: STRENGTH: 2.5 MG / 500 MG; DAILY DOSE: 5 MG / 1000 MG
     Route: 048
     Dates: end: 2013

REACTIONS (3)
  - Rash [Recovered/Resolved]
  - Nausea [Recovered/Resolved]
  - Vomiting [Recovered/Resolved]
